FAERS Safety Report 24459298 (Version 1)
Quarter: 2024Q4

REPORT INFORMATION
  Report Type: Spontaneous
  Country: UA (occurrence: None)
  Receive Date: 20241015
  Receipt Date: 20241015
  Transmission Date: 20250114
  Serious: Yes (unspecified)
  Sender: Public
  Company Number: None

PATIENT
  Age: 32 Year
  Sex: Female

DRUGS (2)
  1. COLLAGENASE [Suspect]
     Active Substance: COLLAGENASE CLOSTRIDIUM HISTOLYTICUM
     Indication: Scar
     Dosage: FREQUENCY : DAILY;?
     Route: 026
     Dates: start: 202109, end: 20240927
  2. Rejuran S [Concomitant]
     Dates: start: 20240914, end: 20240927

REACTIONS (3)
  - Injection site necrosis [None]
  - Soft tissue necrosis [None]
  - Infusion site eschar [None]

NARRATIVE: CASE EVENT DATE: 20240901
